FAERS Safety Report 6465247-1 (Version None)
Quarter: 2009Q4

REPORT INFORMATION
  Report Type: 
  Country: None (occurrence: None)
  Receive Date: 20091201
  Receipt Date: 20090708
  Transmission Date: 20100525
  Serious: No
  Sender: FDA-Public Use
  Company Number: US-AMGEN-COG346577

PATIENT
  Sex: Female
  Weight: 81.3 kg

DRUGS (1)
  1. ENBREL [Suspect]
     Indication: PSORIATIC ARTHROPATHY
     Route: 058
     Dates: start: 20080326

REACTIONS (7)
  - ABDOMINAL PAIN UPPER [None]
  - BREAST CYST [None]
  - BREAST PAIN [None]
  - INJECTION SITE HAEMATOMA [None]
  - INJECTION SITE INDURATION [None]
  - PSORIASIS [None]
  - PSORIATIC ARTHROPATHY [None]
